FAERS Safety Report 15272838 (Version 2)
Quarter: 2018Q3

REPORT INFORMATION
  Report Type: Spontaneous
  Country: AU (occurrence: AU)
  Receive Date: 20180813
  Receipt Date: 20180813
  Transmission Date: 20181010
  Serious: Yes (Hospitalization, Other)
  Sender: FDA-Public Use
  Company Number: PHHY2018AU067274

PATIENT
  Sex: Female

DRUGS (5)
  1. METHOTREXATE. [Suspect]
     Active Substance: METHOTREXATE
     Indication: PRODUCT USED FOR UNKNOWN INDICATION
     Route: 065
  2. ANAKINRA [Suspect]
     Active Substance: ANAKINRA
     Indication: PRODUCT USED FOR UNKNOWN INDICATION
     Route: 065
  3. INFLIXIMAB [Suspect]
     Active Substance: INFLIXIMAB
     Indication: PRODUCT USED FOR UNKNOWN INDICATION
     Route: 065
  4. ADALIMUMAB [Suspect]
     Active Substance: ADALIMUMAB
     Indication: PRODUCT USED FOR UNKNOWN INDICATION
     Route: 065
  5. SECUKINUMAB. [Suspect]
     Active Substance: SECUKINUMAB
     Indication: PRODUCT USED FOR UNKNOWN INDICATION
     Route: 065

REACTIONS (14)
  - Arthralgia [Unknown]
  - Gastrointestinal haemorrhage [Unknown]
  - Thrombocytosis [Unknown]
  - Confusional state [Unknown]
  - Peripheral swelling [Unknown]
  - Haematological malignancy [Recovering/Resolving]
  - Anal stenosis [Unknown]
  - Abdominal pain [Unknown]
  - Migraine [Unknown]
  - Gastrointestinal pain [Recovering/Resolving]
  - Vertigo [Recovered/Resolved]
  - Anal incontinence [Unknown]
  - Leukocytosis [Unknown]
  - Swelling [Unknown]
